FAERS Safety Report 5307602-9 (Version None)
Quarter: 2007Q2

REPORT INFORMATION
  Report Type: 
  Country: None (occurrence: None)
  Receive Date: 20070425
  Receipt Date: 20070415
  Transmission Date: 20071010
  Serious: Yes (Other)
  Sender: FDA-Public Use
  Company Number: US-PFIZER INC-2007030378

PATIENT
  Sex: Male
  Weight: 134.09 kg

DRUGS (2)
  1. CHANTIX [Suspect]
     Indication: SMOKING CESSATION THERAPY
     Route: 048
     Dates: start: 20070410
  2. LIPITOR [Concomitant]
     Route: 048

REACTIONS (1)
  - HAEMATOCHEZIA [None]
